FAERS Safety Report 14306506 (Version 1)
Quarter: 2017Q4

REPORT INFORMATION
  Report Type: Spontaneous
  Country: FR (occurrence: FR)
  Receive Date: 20171220
  Receipt Date: 20171220
  Transmission Date: 20180321
  Serious: Yes (Other)
  Sender: FDA-Public Use
  Company Number: FR-MERCK KGAA-2037442

PATIENT
  Age: 52 Year
  Sex: Female

DRUGS (1)
  1. NOVOTHYROX [Suspect]
     Active Substance: LEVOTHYROXINE SODIUM
     Indication: PRODUCT USED FOR UNKNOWN INDICATION

REACTIONS (16)
  - Muscle spasms [None]
  - Migraine [None]
  - Mood altered [None]
  - Aggression [None]
  - Fatigue [None]
  - Weight increased [None]
  - Blood thyroid stimulating hormone increased [None]
  - Decreased appetite [None]
  - Depression [None]
  - Blood triglycerides increased [None]
  - Palpitations [None]
  - Blood cholesterol increased [None]
  - Sleep disorder [None]
  - Loss of personal independence in daily activities [None]
  - Libido decreased [None]
  - Alopecia [None]

NARRATIVE: CASE EVENT DATE: 2017
